FAERS Safety Report 16459039 (Version 2)
Quarter: 2019Q3

REPORT INFORMATION
  Report Type: Spontaneous
  Country: US (occurrence: US)
  Receive Date: 20190620
  Receipt Date: 20190925
  Transmission Date: 20191004
  Serious: No
  Sender: FDA-Public Use
  Company Number: US-THERAPEUTICSMD-2019TMD01182

PATIENT
  Age: 75 Year
  Sex: Female
  Weight: 72.11 kg

DRUGS (3)
  1. IMVEXXY [Suspect]
     Active Substance: ESTRADIOL
     Indication: ATROPHIC VULVOVAGINITIS
  2. IMVEXXY [Suspect]
     Active Substance: ESTRADIOL
     Indication: VULVOVAGINAL DRYNESS
     Dosage: 10 ?G, 2X/WEEK BEFORE BED
     Route: 067
     Dates: start: 201904, end: 201905
  3. UNSPECIFED MEDICATION FOR RHEUMATOID ARTHRITIS [Concomitant]

REACTIONS (7)
  - Rash erythematous [Not Recovered/Not Resolved]
  - Vulvovaginal rash [Recovered/Resolved]
  - Vaginal exfoliation [Recovering/Resolving]
  - Off label use [Recovered/Resolved]
  - Discomfort [Not Recovered/Not Resolved]
  - Vulvovaginal swelling [Not Recovered/Not Resolved]
  - Vaginal discharge [Not Recovered/Not Resolved]

NARRATIVE: CASE EVENT DATE: 201904
